FAERS Safety Report 23668550 (Version 1)
Quarter: 2024Q1

REPORT INFORMATION
  Report Type: Spontaneous
  Country: US (occurrence: None)
  Receive Date: 20240323
  Receipt Date: 20240323
  Transmission Date: 20240409
  Serious: Yes (Other)
  Sender: FDA-Public Use
  Company Number: None

PATIENT
  Age: 3 Year
  Sex: Male
  Weight: 15.3 kg

DRUGS (1)
  1. OSELTAMIVIR [Suspect]
     Active Substance: OSELTAMIVIR
     Indication: Influenza
     Dosage: OTHER QUANTITY : 5 ML;?FREQUENCY : TWICE A DAY;?
     Route: 048
     Dates: start: 20240319, end: 20240322

REACTIONS (3)
  - Headache [None]
  - Mood altered [None]
  - Epistaxis [None]

NARRATIVE: CASE EVENT DATE: 20240320
